FAERS Safety Report 23543573 (Version 2)
Quarter: 2024Q1

REPORT INFORMATION
  Report Type: Spontaneous
  Country: JP (occurrence: JP)
  Receive Date: 20240220
  Receipt Date: 20240312
  Transmission Date: 20240410
  Serious: Yes (Hospitalization, Other)
  Sender: FDA-Public Use
  Company Number: JP-INSMED-2024-00584-JPAA

PATIENT
  Age: 70 Year
  Sex: Male

DRUGS (1)
  1. ARIKAYCE [Suspect]
     Active Substance: AMIKACIN
     Indication: Mycobacterium avium complex infection
     Dosage: UNK
     Route: 055

REACTIONS (5)
  - Organising pneumonia [Unknown]
  - Pseudomonas infection [Unknown]
  - Visual impairment [Unknown]
  - Incorrect product administration duration [Unknown]
  - Accidental underdose [Unknown]
